FAERS Safety Report 10233047 (Version 1)
Quarter: 2014Q2

REPORT INFORMATION
  Report Type: Spontaneous
  Country: US (occurrence: US)
  Receive Date: 20140612
  Receipt Date: 20140612
  Transmission Date: 20141212
  Serious: No
  Sender: FDA-Public Use
  Company Number: US-PFIZER INC-2014157425

PATIENT
  Age: 53 Year
  Sex: Male
  Weight: 92 kg

DRUGS (2)
  1. LYRICA [Suspect]
     Indication: DIABETES MELLITUS
     Dosage: 75 MG, 3X/DAY
     Route: 048
     Dates: start: 201403
  2. ISOSORBIDE [Concomitant]
     Dosage: UNK

REACTIONS (2)
  - Blood glucose abnormal [Unknown]
  - Malaise [Unknown]
